FAERS Safety Report 7982540-1 (Version None)
Quarter: 2011Q4

REPORT INFORMATION
  Report Type: 
  Country: None (occurrence: None)
  Receive Date: 20111215
  Receipt Date: 20111202
  Transmission Date: 20120403
  Serious: Yes (Other)
  Sender: FDA-Public Use
  Company Number: CA-ROCHE-1016830

PATIENT
  Sex: Female
  Weight: 52.6 kg

DRUGS (23)
  1. VERAPAMIL [Concomitant]
  2. LORAZEPAM [Concomitant]
  3. CROMOLYN SODIUM [Concomitant]
  4. IMODIUM [Concomitant]
  5. MAGNESIUM SULFATE [Concomitant]
  6. MABTHERA [Suspect]
     Indication: RHEUMATOID ARTHRITIS
     Dosage: FREQUENCY: DAY 1 AND DAY 15
     Route: 042
     Dates: start: 20080902
  7. OGEN [Concomitant]
  8. WELLBUTRIN [Concomitant]
  9. PERINDOPRIL ERBUMINE [Concomitant]
  10. VITAMIN D [Concomitant]
  11. PAMIDRONATE DISODIUM [Concomitant]
  12. SCOPOLAMINE [Concomitant]
  13. MULTI-VITAMINS [Concomitant]
  14. CELEXA [Concomitant]
  15. LOSEC (CANADA) [Concomitant]
  16. MAXALT [Concomitant]
  17. REACTINE (CANADA) [Concomitant]
  18. PREDNISONE TAB [Concomitant]
  19. TOPAMAX [Concomitant]
  20. TRAZODONE HCL [Concomitant]
  21. CALCIUM [Concomitant]
  22. VAGIFEM [Concomitant]
  23. LOMOTIL [Concomitant]

REACTIONS (2)
  - CARDIAC FAILURE CONGESTIVE [None]
  - INFLUENZA [None]
